FAERS Safety Report 17553521 (Version 2)
Quarter: 2020Q1

REPORT INFORMATION
  Report Type: Report from Study
  Country: US (occurrence: US)
  Receive Date: 20200317
  Receipt Date: 20200324
  Transmission Date: 20200409
  Serious: Yes (Other)
  Sender: FDA-Public Use
  Company Number: US-B.I. PHARMACEUTICALS,INC./RIDGEFIELD-2019-BI-117170

PATIENT
  Sex: Male

DRUGS (4)
  1. OFEV [Suspect]
     Active Substance: NINTEDANIB
     Route: 048
  2. MYCOPHENOLATE [Concomitant]
     Active Substance: MYCOPHENOLIC ACID
     Indication: PRODUCT USED FOR UNKNOWN INDICATION
     Route: 065
  3. OFEV [Suspect]
     Active Substance: NINTEDANIB
     Indication: IDIOPATHIC PULMONARY FIBROSIS
     Route: 048
     Dates: start: 20191118
  4. IMODIUM [Suspect]
     Active Substance: LOPERAMIDE HYDROCHLORIDE
     Indication: DIARRHOEA
     Route: 065

REACTIONS (19)
  - Lymphadenopathy [Unknown]
  - Back pain [Unknown]
  - Decreased appetite [Unknown]
  - Nausea [Unknown]
  - Muscle strain [Unknown]
  - Herpes zoster [Unknown]
  - Diarrhoea [Recovered/Resolved]
  - Feeding disorder [Unknown]
  - Neuralgia [Not Recovered/Not Resolved]
  - Radiculopathy [Unknown]
  - Abdominal discomfort [Unknown]
  - Tooth extraction [Not Recovered/Not Resolved]
  - Constipation [Not Recovered/Not Resolved]
  - Diarrhoea [Recovered/Resolved]
  - Nausea [Recovered/Resolved]
  - Procedural haemorrhage [Unknown]
  - Vomiting [Recovered/Resolved]
  - Dysphagia [Unknown]
  - Dysphagia [Not Recovered/Not Resolved]

NARRATIVE: CASE EVENT DATE: 2019
